FAERS Safety Report 12439869 (Version 1)
Quarter: 2016Q2

REPORT INFORMATION
  Report Type: Spontaneous
  Country: PL (occurrence: PL)
  Receive Date: 20160606
  Receipt Date: 20160606
  Transmission Date: 20160815
  Serious: Yes (Death)
  Sender: FDA-Public Use
  Company Number: PL-KADMON PHARMACEUTICALS, LLC-KAD201606-002028

PATIENT
  Age: 54 Year
  Sex: Female
  Weight: 79.4 kg

DRUGS (7)
  1. ALNETA [Concomitant]
     Indication: HYPERTENSION
     Route: 048
  2. PROPRANOLOL [Concomitant]
     Active Substance: PROPRANOLOL\PROPRANOLOL HYDROCHLORIDE
     Indication: PORTAL HYPERTENSION
     Dosage: TABLET
     Route: 048
  3. VIEKIRAX [Suspect]
     Active Substance: OMBITASVIR\PARITAPREVIR\RITONAVIR
     Indication: HEPATITIS C
     Dosage: TABLET
     Route: 048
     Dates: start: 20160125, end: 20160412
  4. RIBAVIRIN 1200 MG TABLETS [Suspect]
     Active Substance: RIBAVIRIN
     Indication: HEPATITIS C
     Route: 048
     Dates: start: 20160125, end: 20160412
  5. AMPRIL [Concomitant]
     Indication: DIABETES MELLITUS
     Dosage: TABLET
     Route: 048
  6. EXVIERA 250 MG [Suspect]
     Active Substance: DASABUVIR
     Indication: HEPATITIS C
     Dosage: TABLET
     Route: 048
     Dates: start: 20160125, end: 20160412
  7. MONONIT [Concomitant]
     Indication: PORTAL HYPERTENSION
     Dosage: TABLET
     Route: 048

REACTIONS (2)
  - Sudden death [Fatal]
  - Abdominal pain [Unknown]

NARRATIVE: CASE EVENT DATE: 20160502
